FAERS Safety Report 5812537-9 (Version None)
Quarter: 2008Q3

REPORT INFORMATION
  Report Type: 
  Country: None (occurrence: None)
  Receive Date: 20080711
  Receipt Date: 20080626
  Transmission Date: 20090109
  Serious: Yes (Hospitalization)
  Sender: FDA-Public Use
  Company Number: 8033585

PATIENT
  Age: 60 Year
  Sex: Male

DRUGS (5)
  1. KEPPRA [Suspect]
     Indication: EPILEPSY
     Dosage: 500 MG 2/D PO
     Route: 048
     Dates: end: 20080508
  2. PANTOZOL /012632-2/ [Concomitant]
  3. SEROQUEL [Concomitant]
  4. PIPRIL [Concomitant]
  5. COMBACTAM [Concomitant]

REACTIONS (8)
  - ASPARTATE AMINOTRANSFERASE INCREASED [None]
  - BLOOD ALKALINE PHOSPHATASE INCREASED [None]
  - BLOOD BILIRUBIN INCREASED [None]
  - BRONCHITIS [None]
  - GAMMA-GLUTAMYLTRANSFERASE INCREASED [None]
  - NO THERAPEUTIC RESPONSE [None]
  - PANCYTOPENIA [None]
  - PROTHROMBIN TIME PROLONGED [None]
